FAERS Safety Report 23773460 (Version 1)
Quarter: 2024Q2

REPORT INFORMATION
  Report Type: Report from Study
  Country: CA (occurrence: CA)
  Receive Date: 20240423
  Receipt Date: 20240423
  Transmission Date: 20240716
  Serious: Yes (Other)
  Sender: FDA-Public Use
  Company Number: CA-JAMP PHARMA CORPORATION-2023-JAM-CA-01873

PATIENT
  Age: 48 Year
  Sex: Female

DRUGS (1)
  1. SIMLANDI [Suspect]
     Active Substance: ADALIMUMAB-RYVK
     Indication: Colitis ulcerative
     Dosage: 40 MILLIGRAM, EVERY OTHER WEEK
     Route: 058

REACTIONS (2)
  - Colitis ulcerative [Not Recovered/Not Resolved]
  - SARS-CoV-2 test positive [Unknown]
